FAERS Safety Report 7342435-3 (Version None)
Quarter: 2011Q1

REPORT INFORMATION
  Report Type: 
  Country: None (occurrence: None)
  Receive Date: 20110228
  Receipt Date: 20110208
  Transmission Date: 20110831
  Serious: Yes (Death)
  Sender: FDA-Public Use
  Company Number: 2011020100

PATIENT
  Age: 42 Year
  Sex: Female

DRUGS (3)
  1. CARISOPRODOL(CARISOPRODOL) [Suspect]
     Dosage: ORAL
     Route: 048
  2. ETHANOL (ETHANOL) [Suspect]
     Dosage: ORAL
     Route: 048
  3. TRAZODONE [Suspect]
     Dosage: ORAL
     Route: 048

REACTIONS (1)
  - COMPLETED SUICIDE [None]
